FAERS Safety Report 7885656-3 (Version None)
Quarter: 2011Q4

REPORT INFORMATION
  Report Type: 
  Country: None (occurrence: None)
  Receive Date: 20111102
  Receipt Date: 20110629
  Transmission Date: 20120403
  Serious: No
  Sender: FDA-Public Use
  Company Number: US-AMGEN-USASP2011028481

PATIENT
  Age: 59 Year
  Sex: Female
  Weight: 81.179 kg

DRUGS (1)
  1. ENBREL [Suspect]
     Indication: RHEUMATOID ARTHRITIS
     Dosage: 50 MG, QWK
     Route: 058
     Dates: start: 20110401

REACTIONS (6)
  - INJECTION SITE SWELLING [None]
  - INJECTION SITE PAIN [None]
  - LACERATION [None]
  - INJECTION SITE ERYTHEMA [None]
  - INJECTION SITE HAEMATOMA [None]
  - INJECTION SITE EXFOLIATION [None]
